FAERS Safety Report 23391122 (Version 2)
Quarter: 2024Q1

REPORT INFORMATION
  Report Type: Spontaneous
  Country: PL (occurrence: PL)
  Receive Date: 20240111
  Receipt Date: 20240130
  Transmission Date: 20240410
  Serious: Yes (Hospitalization, Other)
  Sender: FDA-Public Use
  Company Number: PL-Accord-398155

PATIENT
  Age: 57 Year
  Sex: Female
  Weight: 69.0 kg

DRUGS (15)
  1. CARBOPLATIN [Suspect]
     Active Substance: CARBOPLATIN
     Indication: Non-small cell lung cancer
     Dosage: DOSE: 6 AUC, 1Q3W
     Route: 042
     Dates: start: 20231010, end: 20231123
  2. PACLITAXEL [Suspect]
     Active Substance: PACLITAXEL
     Indication: Non-small cell lung cancer
     Dosage: 1Q3W,
     Route: 042
     Dates: start: 20231010, end: 20231123
  3. PEMBROLIZUMAB [Suspect]
     Active Substance: PEMBROLIZUMAB
     Indication: Non-small cell lung cancer
     Dosage: 1Q3W
     Route: 042
     Dates: start: 20231010, end: 20231123
  4. ASPIRIN [Concomitant]
     Active Substance: ASPIRIN
     Dates: start: 20120101
  5. BISOPROLOL [Concomitant]
     Active Substance: BISOPROLOL\BISOPROLOL FUMARATE
     Dates: start: 20120101
  6. CRESTOR [Concomitant]
     Active Substance: ROSUVASTATIN CALCIUM
     Dates: start: 20120101
  7. ATOSSA [Concomitant]
     Dates: start: 20231017
  8. ONDANSETRON [Concomitant]
     Active Substance: ONDANSETRON
     Dates: start: 20231123, end: 20231123
  9. FAMOGAST [Concomitant]
     Dates: start: 20231123, end: 20231123
  10. CLEMASTINE [Concomitant]
     Active Substance: CLEMASTINE
     Dates: start: 20231123, end: 20231123
  11. DEXAMETHASONE [Concomitant]
     Active Substance: DEXAMETHASONE
     Dates: start: 20231123, end: 20231123
  12. DEXAMETHASONE [Concomitant]
     Active Substance: DEXAMETHASONE
     Dates: start: 20231122, end: 20231124
  13. CALCIUM CHLORIDE [Concomitant]
     Active Substance: CALCIUM CHLORIDE
     Dates: start: 20231205, end: 20231211
  14. MIDAZOLAM HYDROCHLORIDE [Concomitant]
     Active Substance: MIDAZOLAM HYDROCHLORIDE
     Dates: start: 20231205, end: 20231205
  15. ACETAMINOPHEN [Concomitant]
     Active Substance: ACETAMINOPHEN
     Dates: start: 20231205, end: 20231205

REACTIONS (1)
  - Pneumonitis [Not Recovered/Not Resolved]

NARRATIVE: CASE EVENT DATE: 20231209
